FAERS Safety Report 9619426 (Version 1)
Quarter: 2013Q4

REPORT INFORMATION
  Report Type: Report from Study
  Country: US (occurrence: US)
  Receive Date: 20131014
  Receipt Date: 20131014
  Transmission Date: 20140711
  Serious: Yes (Hospitalization)
  Sender: FDA-Public Use
  Company Number: US-ROCHE-1287876

PATIENT
  Sex: 0

DRUGS (23)
  1. OMALIZUMAB [Suspect]
     Indication: PRODUCT USED FOR UNKNOWN INDICATION
     Route: 058
  2. FENOFIBRATE [Concomitant]
     Route: 048
  3. LYRICA [Concomitant]
     Route: 048
  4. AMBIEN [Concomitant]
     Dosage: AT BEDTIME PRN
     Route: 048
  5. MOBIC [Concomitant]
     Route: 048
  6. SINGULAIR [Concomitant]
     Route: 048
  7. REQUIP [Concomitant]
     Dosage: BEDTIME
     Route: 065
  8. PROAIR (UNITED STATES) [Concomitant]
     Dosage: PER ACT 2 PUFFS EVERY 4 HOURS
     Route: 065
  9. SPIRIVA HANDIHALER [Concomitant]
     Route: 065
  10. EFFEXOR XR [Concomitant]
     Route: 048
  11. PULMICORT [Concomitant]
     Dosage: 2 MLS PER INHALTION
     Route: 055
  12. ZOCOR [Concomitant]
     Route: 048
  13. PERFOROMIST [Concomitant]
     Dosage: 2 ML NEBULIZER SOLUTION
     Route: 065
  14. ASPIRIN [Concomitant]
     Route: 048
  15. NOVOLOG [Concomitant]
     Dosage: 100 UNITS PER ML
     Route: 058
  16. PANTOPRAZOLE [Concomitant]
     Route: 048
  17. CPAP [Concomitant]
     Dosage: AT 12 CM OF WATER PRESSURE WITH HEATED HUMIDIFIER
     Route: 065
  18. LOSARTAN [Concomitant]
     Route: 048
  19. HYDROCORTISONE [Concomitant]
     Dosage: 5-500 MG
     Route: 048
  20. RECLAST [Concomitant]
     Route: 048
  21. VALIUM [Concomitant]
     Route: 048
  22. SYNTHROID [Concomitant]
     Route: 048
  23. ACETAMINOPHEN [Concomitant]

REACTIONS (6)
  - Pneumonia [Unknown]
  - Bronchiectasis [Unknown]
  - Back pain [Unknown]
  - Chest pain [Unknown]
  - Cough [Unknown]
  - Dyspnoea exertional [Unknown]
